FAERS Safety Report 6220281-1 (Version None)
Quarter: 2009Q2

REPORT INFORMATION
  Report Type: 
  Country: None (occurrence: None)
  Receive Date: 20090602
  Receipt Date: 20090522
  Transmission Date: 20091009
  Serious: Yes (Hospitalization)
  Sender: FDA-Public Use
  Company Number: AEUSA200900164

PATIENT
  Age: 43 Year
  Sex: Female
  Weight: 113.3993 kg

DRUGS (10)
  1. GAMUNEX [Suspect]
     Indication: IMMUNODEFICIENCY COMMON VARIABLE
     Dosage: 30 GM; QM; IV
     Route: 042
     Dates: start: 20070501
  2. ATIVAN (CON.) [Concomitant]
  3. BENADRYL /00000402/ (CON.) [Concomitant]
  4. OXYCONTIN (CON.) [Concomitant]
  5. TYLENOL /00020001/ (CON.) [Concomitant]
  6. NEURONTIN (CON.) [Concomitant]
  7. COPAXONE /01410902/ (CON.) [Concomitant]
  8. ZOFRAN /00955302/ (CON.) [Concomitant]
  9. PROCHLORPERAZINE (CON.) [Concomitant]
  10. DESMOPRESSIN (CON.) [Concomitant]

REACTIONS (14)
  - ANOREXIA [None]
  - BLOOD PRESSURE FLUCTUATION [None]
  - BODY TEMPERATURE DECREASED [None]
  - BONE PAIN [None]
  - DRUG INEFFECTIVE [None]
  - MUSCULOSKELETAL PAIN [None]
  - MUSCULOSKELETAL STIFFNESS [None]
  - NAUSEA [None]
  - NECK PAIN [None]
  - RENAL DISORDER [None]
  - RENAL FAILURE [None]
  - SEPSIS [None]
  - SWELLING [None]
  - WEIGHT INCREASED [None]
